FAERS Safety Report 4486800-0 (Version None)
Quarter: 2004Q4

REPORT INFORMATION
  Report Type: 
  Country: None (occurrence: None)
  Receive Date: 20041022
  Receipt Date: 20031209
  Transmission Date: 20050328
  Serious: Yes (Disabling, Other)
  Sender: FDA-Public Use
  Company Number: 200418369BWH

PATIENT
  Sex: Male

DRUGS (1)
  1. BAYCOL [Suspect]
     Indication: BLOOD CHOLESTEROL INCREASED
     Dosage: ORAL
     Route: 048
     Dates: start: 19980101, end: 20010801

REACTIONS (13)
  - ARTHRALGIA [None]
  - BACK PAIN [None]
  - CONVULSION [None]
  - DEHYDRATION [None]
  - DYSPEPSIA [None]
  - NAUSEA [None]
  - ORGAN FAILURE [None]
  - PYREXIA [None]
  - RENAL FAILURE [None]
  - RENAL PAIN [None]
  - RENAL TUBULAR NECROSIS [None]
  - RHABDOMYOLYSIS [None]
  - VOMITING [None]
